FAERS Safety Report 9500517 (Version 1)
Quarter: 2013Q3

REPORT INFORMATION
  Report Type: Spontaneous
  Country: JP (occurrence: JP)
  Receive Date: 20130905
  Receipt Date: 20130905
  Transmission Date: 20140515
  Serious: Yes (Hospitalization)
  Sender: FDA-Public Use
  Company Number: JP-ASTELLAS-2013JP009054

PATIENT
  Sex: Male

DRUGS (19)
  1. PROGRAF [Suspect]
     Indication: POLYCHONDRITIS
     Dosage: UNK
     Route: 065
     Dates: start: 2010, end: 2010
  2. PREDNISOLONE [Concomitant]
     Indication: POLYCHONDRITIS
     Dosage: 30 MG, UNKNOWN/D
     Route: 048
     Dates: start: 2009, end: 2009
  3. PREDNISOLONE [Concomitant]
     Dosage: 50 MG, UNKNOWN/D
     Route: 048
     Dates: start: 2009, end: 2009
  4. PREDNISOLONE [Concomitant]
     Dosage: 30 MG, UNKNOWN/D
     Route: 048
     Dates: start: 2009, end: 2009
  5. PREDNISOLONE [Concomitant]
     Dosage: UNK
     Route: 048
  6. PREDNISOLONE [Concomitant]
     Dosage: 27.5 MG, UNKNOWN/D
     Route: 048
     Dates: start: 201002, end: 2010
  7. PREDNISOLONE [Concomitant]
     Dosage: 60 MG, UNKNOWN/D
     Route: 048
     Dates: start: 2010
  8. PREDNISOLONE [Concomitant]
     Route: 048
  9. PREDNISOLONE [Concomitant]
     Dosage: 27.5 MG, UNKNOWN/D
     Route: 048
  10. PREDNISOLONE [Concomitant]
     Route: 048
  11. PREDNISOLONE [Concomitant]
     Dosage: 32.5 MG, UNKNOWN/D
     Route: 048
     Dates: start: 2012
  12. INFLIXIMAB [Concomitant]
     Indication: POLYCHONDRITIS
     Dosage: UNK
     Route: 065
     Dates: start: 2010, end: 2010
  13. METHOTREXATE [Concomitant]
     Indication: POLYCHONDRITIS
     Dosage: UNK
     Route: 065
     Dates: start: 2010, end: 2010
  14. METHYLPREDNISOLONE [Concomitant]
     Indication: POLYCHONDRITIS
     Dosage: 1 G, UNKNOWN/D
     Route: 041
     Dates: start: 2009, end: 2009
  15. METHYLPREDNISOLONE [Concomitant]
     Dosage: 0.5 G, UNKNOWN/D
     Route: 041
     Dates: start: 2010, end: 2010
  16. METHYLPREDNISOLONE [Concomitant]
     Dosage: 0.5 G, UNKNOWN/D
     Route: 041
     Dates: start: 2010, end: 2010
  17. METHYLPREDNISOLONE [Concomitant]
     Dosage: 0.5 G, UNKNOWN/D
     Route: 041
     Dates: start: 2011, end: 2011
  18. CYCLOSPORIN [Concomitant]
     Indication: POLYCHONDRITIS
     Dosage: 200 MG, UNKNOWN/D
     Route: 065
     Dates: start: 2009
  19. CYCLOSPORIN [Concomitant]
     Dosage: 150 MG, UNKNOWN/D
     Route: 065
     Dates: start: 2012

REACTIONS (2)
  - Drug ineffective for unapproved indication [Unknown]
  - Polychondritis [Unknown]
